FAERS Safety Report 5019362-X (Version None)
Quarter: 2006Q2

REPORT INFORMATION
  Report Type: 
  Country: None (occurrence: None)
  Receive Date: 20060531
  Receipt Date: 20060518
  Transmission Date: 20061013
  Serious: Yes (Life-Threatening)
  Sender: FDA-Public Use
  Company Number: 2006065584

PATIENT
  Age: 63 Year
  Sex: Male

DRUGS (15)
  1. DOXORUBICIN HCL [Suspect]
     Indication: MULTIPLE MYELOMA
     Dosage: 14 MG, INTRAVENOUS, 12MG; INTRAVENOUS
     Route: 042
     Dates: start: 20060217, end: 20060220
  2. DOXORUBICIN HCL [Suspect]
     Indication: MULTIPLE MYELOMA
     Dosage: 14 MG, INTRAVENOUS, 12MG; INTRAVENOUS
     Route: 042
     Dates: start: 20060417
  3. ONCOVIN [Suspect]
     Indication: MULTIPLE MYELOMA
     Dosage: 0.5 MG, INTRAVENOUS
     Route: 042
     Dates: start: 20060217, end: 20060220
  4. ONCOVIN [Suspect]
     Indication: MULTIPLE MYELOMA
     Dosage: 0.5 MG, INTRAVENOUS
     Route: 042
     Dates: start: 20060417
  5. CYCLOPHOSPHAMIDE [Suspect]
     Indication: MULTIPLE MYELOMA
     Dosage: 700 MG; INTRAVENOUS; 625 MG; INTRAVENOUS
     Route: 042
     Dates: start: 20060217, end: 20060217
  6. CYCLOPHOSPHAMIDE [Suspect]
     Indication: MULTIPLE MYELOMA
     Dosage: 700 MG; INTRAVENOUS; 625 MG; INTRAVENOUS
     Route: 042
     Dates: start: 20060417
  7. DECADRON SRC [Concomitant]
  8. KYTRIL [Concomitant]
  9. PELTAZON (PENTAZOCINE) [Concomitant]
  10. CALONAL (PARACETAMOL) [Concomitant]
  11. LASIX [Concomitant]
  12. MUCOSTA (REBAMIPIDE) [Concomitant]
  13. SULFAMETHOXAZOLE + TRIMETHOPRIM [Concomitant]
  14. DIFLUCAN [Concomitant]
  15. MS CONTIN [Concomitant]

REACTIONS (4)
  - ABDOMINAL PAIN [None]
  - DIVERTICULUM INTESTINAL [None]
  - GASTROINTESTINAL PERFORATION [None]
  - WHITE BLOOD CELL COUNT INCREASED [None]
